FAERS Safety Report 6819641-7 (Version None)
Quarter: 2010Q2

REPORT INFORMATION
  Report Type: 
  Country: None (occurrence: None)
  Receive Date: 20100630
  Receipt Date: 20100619
  Transmission Date: 20101027
  Serious: Yes (Other)
  Sender: FDA-Public Use
  Company Number: 2010AP001261

PATIENT
  Age: 66 Year
  Sex: Female

DRUGS (1)
  1. ALENDRONATE SODIUM [Suspect]
     Indication: OSTEOPOROSIS
     Dosage: ;PO
     Route: 048

REACTIONS (3)
  - BONE DISORDER [None]
  - FEMUR FRACTURE [None]
  - STRESS FRACTURE [None]
